FAERS Safety Report 11501507 (Version 1)
Quarter: 2015Q3

REPORT INFORMATION
  Report Type: Spontaneous
  Country: US (occurrence: US)
  Receive Date: 20150914
  Receipt Date: 20150914
  Transmission Date: 20151125
  Serious: No
  Sender: FDA-Public Use
  Company Number: US-MEDA-2015090013

PATIENT
  Sex: Male
  Weight: 75 kg

DRUGS (2)
  1. DYMISTA [Suspect]
     Active Substance: AZELASTINE HYDROCHLORIDE\FLUTICASONE PROPIONATE
     Indication: RHINITIS ALLERGIC
     Dates: start: 201508, end: 20150831
  2. BYSTOLIC [Concomitant]
     Active Substance: NEBIVOLOL HYDROCHLORIDE
     Indication: HYPERTENSION
     Dates: start: 2006

REACTIONS (2)
  - Asthenia [Not Recovered/Not Resolved]
  - Weight increased [Not Recovered/Not Resolved]

NARRATIVE: CASE EVENT DATE: 201508
